FAERS Safety Report 23992117 (Version 1)
Quarter: 2024Q2

REPORT INFORMATION
  Report Type: Spontaneous
  Country: US (occurrence: US)
  Receive Date: 20240620
  Receipt Date: 20240620
  Transmission Date: 20240716
  Serious: No
  Sender: FDA-Public Use
  Company Number: US-ROCHE-10000000140

PATIENT
  Age: 56 Year
  Sex: Female

DRUGS (1)
  1. ACTEMRA [Suspect]
     Active Substance: TOCILIZUMAB
     Indication: Rheumatoid arthritis
     Dosage: ACTEMRA ACTPEN- STRENGTH: 162MG/0.9ML
     Route: 058

REACTIONS (3)
  - Rash papular [Unknown]
  - Pruritus [Unknown]
  - Skin warm [Unknown]
